FAERS Safety Report 4325199-7 (Version None)
Quarter: 2004Q1

REPORT INFORMATION
  Report Type: 
  Country: None (occurrence: None)
  Receive Date: 20040323
  Receipt Date: 20040218
  Transmission Date: 20041129
  Serious: No
  Sender: FDA-Public Use
  Company Number: USA040158068

PATIENT
  Age: 45 Year
  Sex: Male

DRUGS (1)
  1. CIALIS [Suspect]
     Dosage: 20 MG

REACTIONS (2)
  - BLOOD PRESSURE DECREASED [None]
  - DIZZINESS [None]
